FAERS Safety Report 11195880 (Version 4)
Quarter: 2015Q3

REPORT INFORMATION
  Report Type: Spontaneous
  Country: US (occurrence: US)
  Receive Date: 20150617
  Receipt Date: 20150803
  Transmission Date: 20151125
  Serious: Yes (Hospitalization, Other)
  Sender: FDA-Public Use
  Company Number: US-TEVA-565354USA

PATIENT
  Age: 63 Year
  Sex: Female

DRUGS (5)
  1. ALBUTEROL. [Suspect]
     Active Substance: ALBUTEROL
     Indication: ASTHMA
     Route: 065
  2. FUROSEMIDE. [Suspect]
     Active Substance: FUROSEMIDE
     Indication: PERIPHERAL SWELLING
     Route: 065
  3. BUDESONIDE. [Suspect]
     Active Substance: BUDESONIDE
     Indication: ASTHMA
     Dosage: INHALATION SUSPENSION
     Route: 065
     Dates: start: 20130813, end: 20130813
  4. BENADRYL [Suspect]
     Active Substance: DIPHENHYDRAMINE HYDROCHLORIDE
     Route: 042
  5. BENICAR [Concomitant]
     Active Substance: OLMESARTAN MEDOXOMIL
     Indication: HYPERTENSION

REACTIONS (17)
  - Upper limb fracture [Not Recovered/Not Resolved]
  - Visual acuity reduced [Unknown]
  - Epstein-Barr virus infection [Unknown]
  - Upper limb fracture [Unknown]
  - Swelling [Unknown]
  - Mouth swelling [Unknown]
  - Swollen tongue [Recovered/Resolved]
  - Loss of consciousness [Unknown]
  - Joint dislocation [Not Recovered/Not Resolved]
  - Dysuria [Unknown]
  - Generalised oedema [Unknown]
  - Seizure [Unknown]
  - Throat tightness [Recovered/Resolved]
  - Fall [Unknown]
  - Lip swelling [Recovered/Resolved]
  - Anaphylactic reaction [Unknown]
  - Hypertension [Unknown]

NARRATIVE: CASE EVENT DATE: 201308
